FAERS Safety Report 6286743-6 (Version None)
Quarter: 2009Q3

REPORT INFORMATION
  Report Type: 
  Country: None (occurrence: None)
  Receive Date: 20090727
  Receipt Date: 20090727
  Transmission Date: 20100115
  Serious: Yes (Other)
  Sender: FDA-Public Use
  Company Number: None

PATIENT
  Age: 45 Year
  Sex: Male

DRUGS (2)
  1. BUPROPION HCL [Suspect]
     Indication: DEPRESSION
     Dosage: 150 MG / PER DAY / ORAL
     Route: 048
     Dates: start: 20090101, end: 20090101
  2. CITALOPRAM [Concomitant]

REACTIONS (7)
  - CONDITION AGGRAVATED [None]
  - DEPRESSIVE SYMPTOM [None]
  - DISEASE RECURRENCE [None]
  - IMPAIRED WORK ABILITY [None]
  - OBSESSIVE THOUGHTS [None]
  - RESTLESSNESS [None]
  - SUICIDAL IDEATION [None]
